FAERS Safety Report 20602097 (Version 1)
Quarter: 2022Q1

REPORT INFORMATION
  Report Type: Spontaneous
  Country: BR (occurrence: BR)
  Receive Date: 20220316
  Receipt Date: 20220316
  Transmission Date: 20220424
  Serious: Yes (Hospitalization)
  Sender: FDA-Public Use
  Company Number: BR-NOVARTISPH-NVSC2022BR059514

PATIENT
  Age: 87 Year
  Sex: Male
  Weight: 75 kg

DRUGS (8)
  1. XOLAIR [Suspect]
     Active Substance: OMALIZUMAB
     Indication: Emphysema
     Dosage: V (ROUTE:ARM (SAYS IT WAS IN THE MUSCLE) EVERY 15 DAYS, STOPPED AT 1 YEAR AGO
     Route: 065
     Dates: start: 202006
  2. GLYCOPYRRONIUM\INDACATEROL [Suspect]
     Active Substance: GLYCOPYRRONIUM\INDACATEROL
     Indication: Lung disorder
     Dosage: UNK, QD (110 MG+50 MG) STARTED 4 YEARS AGO
     Route: 055
  3. GLYCOPYRRONIUM\INDACATEROL [Suspect]
     Active Substance: GLYCOPYRRONIUM\INDACATEROL
     Indication: Hypersensitivity pneumonitis
  4. OXIMAR [Concomitant]
     Indication: Lung disorder
     Dosage: 400 MG, TID
     Route: 055
  5. OXIMAR [Concomitant]
     Indication: Hypersensitivity pneumonitis
  6. ACETYLCYSTEINE [Concomitant]
     Active Substance: ACETYLCYSTEINE
     Indication: Lung disorder
     Dosage: UNK, QD (600 MG IN 5G) STARTED 4 YEARS AGO
     Route: 048
  7. MONTELUKAST SODIUM [Concomitant]
     Active Substance: MONTELUKAST SODIUM
     Indication: Lung disorder
     Dosage: 40 MG, QD
     Route: 048
  8. MONTELUKAST SODIUM [Concomitant]
     Active Substance: MONTELUKAST SODIUM
     Dosage: 5 MG, QD STARTED 4 YEARS AGO
     Route: 048

REACTIONS (8)
  - Illness [Not Recovered/Not Resolved]
  - Swelling [Recovering/Resolving]
  - Dyspnoea [Not Recovered/Not Resolved]
  - Hypersensitivity pneumonitis [Recovering/Resolving]
  - Fatigue [Not Recovered/Not Resolved]
  - Asthenia [Not Recovered/Not Resolved]
  - Blood albumin decreased [Not Recovered/Not Resolved]
  - Fall [Not Recovered/Not Resolved]

NARRATIVE: CASE EVENT DATE: 20220201
